FAERS Safety Report 5270275-8 (Version None)
Quarter: 2007Q1

REPORT INFORMATION
  Report Type: 
  Country: None (occurrence: None)
  Receive Date: 20070320
  Receipt Date: 20070307
  Transmission Date: 20070707
  Serious: Yes (Hospitalization, Disabling, Other)
  Sender: FDA-Public Use
  Company Number: US-ELI_LILLY_AND_COMPANY-US_0503113795

PATIENT
  Age: 49 Year
  Sex: Male
  Weight: 127.27 kg

DRUGS (5)
  1. HUMULIN L [Suspect]
     Indication: DIABETES MELLITUS
  2. HUMULIN R [Suspect]
     Indication: DIABETES MELLITUS
     Dosage: UNK, UNKNOWN
     Dates: start: 19970101, end: 19990101
  3. HUMULIN R [Suspect]
     Dosage: UNK, UNKNOWN
     Dates: start: 19970101, end: 19990101
  4. HUMALOG [Suspect]
     Indication: DIABETES MELLITUS
     Dosage: 300 U, OTHER
     Dates: start: 19990101
  5. LANTUS [Concomitant]
     Dosage: UNK, UNKNOWN
     Dates: end: 20040101

REACTIONS (9)
  - BLOOD GLUCOSE DECREASED [None]
  - BLOOD GLUCOSE INCREASED [None]
  - CATARACT [None]
  - COMA [None]
  - LOSS OF CONSCIOUSNESS [None]
  - MULTIPLE INJURIES [None]
  - ROAD TRAFFIC ACCIDENT [None]
  - SHOCK HYPOGLYCAEMIC [None]
  - VISUAL ACUITY REDUCED [None]
